FAERS Safety Report 23405889 (Version 1)
Quarter: 2024Q1

REPORT INFORMATION
  Report Type: Spontaneous
  Country: US (occurrence: US)
  Receive Date: 20240116
  Receipt Date: 20240116
  Transmission Date: 20240410
  Serious: Yes (Other)
  Sender: FDA-Public Use
  Company Number: US-AMGEN-USASP2024005718

PATIENT
  Age: 57 Year
  Sex: Male

DRUGS (1)
  1. INFLIXIMAB [Suspect]
     Active Substance: INFLIXIMAB
     Indication: Neurosarcoidosis
     Dosage: 7.5 MILLIGRAM/KILOGRAM, QMO (FOR 4 MONTHS)
     Route: 065

REACTIONS (3)
  - Cataract [Unknown]
  - Drug effective for unapproved indication [Unknown]
  - Off label use [Unknown]
